FAERS Safety Report 18705973 (Version 5)
Quarter: 2021Q1

REPORT INFORMATION
  Report Type: Spontaneous
  Country: US (occurrence: US)
  Receive Date: 20210106
  Receipt Date: 20210322
  Transmission Date: 20210419
  Serious: Yes (Other)
  Sender: FDA-Public Use
  Company Number: US-GLAXOSMITHKLINE-US2021AMR001014

PATIENT

DRUGS (4)
  1. ZEJULA [Suspect]
     Active Substance: NIRAPARIB
     Indication: OVARIAN CANCER
     Dosage: 100 MG, QD
     Dates: start: 20201218
  2. BOTOX [Concomitant]
     Active Substance: ONABOTULINUMTOXINA
     Indication: MUSCLE SPASTICITY
     Dosage: UNK
  3. PERIDEX [Suspect]
     Active Substance: CHLORHEXIDINE GLUCONATE
     Indication: GINGIVAL BLEEDING
     Dosage: UNK
  4. ZEJULA [Suspect]
     Active Substance: NIRAPARIB
     Dosage: 100 MG, QD

REACTIONS (11)
  - Urinary retention [Not Recovered/Not Resolved]
  - Hemiparesis [Unknown]
  - Carbohydrate antigen 125 increased [Unknown]
  - Immobile [Unknown]
  - Dry mouth [Unknown]
  - Gingival bleeding [Unknown]
  - Off label use [Unknown]
  - Metastases to central nervous system [Unknown]
  - Insomnia [Unknown]
  - Constipation [Not Recovered/Not Resolved]
  - Nausea [Unknown]
